FAERS Safety Report 12947716 (Version 1)
Quarter: 2016Q4

REPORT INFORMATION
  Report Type: Spontaneous
  Country: US (occurrence: US)
  Receive Date: 20161116
  Receipt Date: 20161116
  Transmission Date: 20170207
  Serious: Yes (Hospitalization)
  Sender: FDA-Public Use
  Company Number: US-MIKART, INC.-1059598

PATIENT
  Age: 73 Year
  Sex: Male

DRUGS (3)
  1. HZT 12.5 MG [Concomitant]
  2. AZOR [Concomitant]
     Active Substance: AMLODIPINE BESYLATE\OLMESARTAN MEDOXOMIL
  3. CHLORZOXAZONE. [Suspect]
     Active Substance: CHLORZOXAZONE
     Indication: FLANK PAIN
     Route: 048
     Dates: start: 20160903, end: 20160904

REACTIONS (6)
  - Asthenia [Unknown]
  - Dizziness [Unknown]
  - Headache [Unknown]
  - Discomfort [Unknown]
  - Anxiety [Unknown]
  - Disorientation [Unknown]

NARRATIVE: CASE EVENT DATE: 20160905
